FAERS Safety Report 10141553 (Version 2)
Quarter: 2014Q2

REPORT INFORMATION
  Report Type: Spontaneous
  Country: JP (occurrence: JP)
  Receive Date: 20140429
  Receipt Date: 20140521
  Transmission Date: 20141212
  Serious: Yes (Hospitalization)
  Sender: FDA-Public Use
  Company Number: JP-VIIV HEALTHCARE LIMITED-B0887135A

PATIENT
  Age: 37 Year
  Sex: Female
  Weight: 70 kg

DRUGS (8)
  1. COMBIVIR [Suspect]
     Indication: HIV INFECTION
     Dosage: 1IUAX TWICE PER DAY
     Route: 048
     Dates: start: 20110224, end: 20120209
  2. KALETRA [Concomitant]
     Indication: HIV INFECTION
     Dosage: 2IUAX TWICE PER DAY
     Route: 048
     Dates: start: 20110224, end: 20120209
  3. SEFMAZON [Concomitant]
     Dosage: 1G TWICE PER DAY
     Route: 042
     Dates: start: 20120209, end: 20120210
  4. OXYTOCIN [Concomitant]
     Indication: UTERINE CONTRACTIONS DURING PREGNANCY
     Dosage: 5IU PER DAY
     Route: 042
     Dates: start: 20120209, end: 20120210
  5. MORPHINE HYDROCHLORIDE [Concomitant]
     Indication: ANAESTHESIA PROCEDURE
     Dosage: 10MG PER DAY
     Dates: start: 20120209, end: 20120209
  6. RETROVIR [Concomitant]
     Dosage: 400MG PER DAY
     Route: 042
     Dates: start: 20120209, end: 20120209
  7. NEO-MINOPHAGEN-C [Concomitant]
     Indication: LIVER DISORDER
     Dosage: 40ML PER DAY
     Route: 042
     Dates: start: 20120209, end: 20120210
  8. CABASER [Concomitant]
     Dosage: 1MG PER DAY
     Route: 048
     Dates: start: 20120209, end: 20120209

REACTIONS (3)
  - Hepatic function abnormal [Recovered/Resolved]
  - Hypertension [Recovered/Resolved]
  - Exposure during pregnancy [Unknown]
